FAERS Safety Report 8240519-9 (Version None)
Quarter: 2012Q1

REPORT INFORMATION
  Report Type: 
  Country: None (occurrence: None)
  Receive Date: 20120328
  Receipt Date: 20120315
  Transmission Date: 20120608
  Serious: Yes (Death)
  Sender: FDA-Public Use
  Company Number: JP-ROCHE-1051354

PATIENT
  Age: 47 Year
  Sex: Female

DRUGS (3)
  1. ACTIVASE [Suspect]
     Indication: CEREBRAL INFARCTION
     Route: 042
     Dates: start: 20111228, end: 20111228
  2. GLYCEOL [Concomitant]
     Dates: start: 20111229, end: 20111229
  3. RADICUT [Suspect]
     Indication: CEREBRAL INFARCTION
     Dates: start: 20111228, end: 20111228

REACTIONS (1)
  - BRAIN HERNIATION [None]
